FAERS Safety Report 22019524 (Version 4)
Quarter: 2023Q2

REPORT INFORMATION
  Report Type: Report from Study
  Country: CA (occurrence: CA)
  Receive Date: 20230222
  Receipt Date: 20230403
  Transmission Date: 20230721
  Serious: Yes (Hospitalization, Other)
  Sender: FDA-Public Use
  Company Number: CA-ABBVIE-4313984

PATIENT
  Age: 25 Year
  Sex: Female

DRUGS (2)
  1. SKYRIZI [Suspect]
     Active Substance: RISANKIZUMAB-RZAA
     Indication: Crohn^s disease
     Dosage: WEEK 0, THEN WEEK 4 AND WEEK 8. FIRST ADMIN DATE 30 JAN 2023
     Route: 042
     Dates: start: 20230130, end: 20230220
  2. SKYRIZI [Suspect]
     Active Substance: RISANKIZUMAB-RZAA
     Indication: Crohn^s disease
     Route: 042
     Dates: start: 2023

REACTIONS (3)
  - Intestinal resection [Unknown]
  - Pyrexia [Recovered/Resolved with Sequelae]
  - Intestinal perforation [Unknown]

NARRATIVE: CASE EVENT DATE: 20230325
